FAERS Safety Report 21065073 (Version 1)
Quarter: 2022Q3

REPORT INFORMATION
  Report Type: Other
  Country: GB (occurrence: GB)
  Receive Date: 20220711
  Receipt Date: 20220711
  Transmission Date: 20221026
  Serious: Yes (Other)
  Sender: FDA-Public Use
  Company Number: GB-MHRA-MED-202206261413153940-YFNCT

PATIENT

DRUGS (2)
  1. GABAPENTIN [Suspect]
     Active Substance: GABAPENTIN
     Indication: Sleep disorder
     Dosage: 900 MILLIGRAM (300 MILLIGRAM X 3), HS
     Route: 065
  2. GABAPENTIN [Suspect]
     Active Substance: GABAPENTIN
     Dosage: 300 MILLIGRAM (300 X1), HS
     Route: 065

REACTIONS (26)
  - Anger [Recovered/Resolved]
  - Red ear syndrome [Recovering/Resolving]
  - Cognitive disorder [Recovering/Resolving]
  - Medication error [Unknown]
  - Vision blurred [Recovering/Resolving]
  - Peripheral swelling [Recovered/Resolved]
  - Aphasia [Recovering/Resolving]
  - Abnormal dreams [Recovering/Resolving]
  - Flatulence [Recovering/Resolving]
  - Increased appetite [Recovering/Resolving]
  - Lymphadenopathy [Recovered/Resolved]
  - Hypersensitivity [Unknown]
  - Amnesia [Recovering/Resolving]
  - Drug dependence [Unknown]
  - Feeling hot [Unknown]
  - Nasopharyngitis [Unknown]
  - Muscle spasms [Unknown]
  - Pain in extremity [Unknown]
  - Extra dose administered [Unknown]
  - Abdominal discomfort [Unknown]
  - Tinnitus [Unknown]
  - Tremor [Unknown]
  - Panic attack [Unknown]
  - Hyperhidrosis [Unknown]
  - Withdrawal syndrome [Unknown]
  - Nausea [Unknown]

NARRATIVE: CASE EVENT DATE: 20170401
